FAERS Safety Report 8153962-3 (Version None)
Quarter: 2012Q1

REPORT INFORMATION
  Report Type: 
  Country: None (occurrence: None)
  Receive Date: 20120221
  Receipt Date: 20120221
  Transmission Date: 20120608
  Serious: Yes (Other)
  Sender: FDA-Public Use
  Company Number: None

PATIENT
  Age: 68 Year
  Sex: Male
  Weight: 68.038 kg

DRUGS (1)
  1. PRAVASTATIN [Suspect]

REACTIONS (1)
  - HEPATIC STEATOSIS [None]
